FAERS Safety Report 19752692 (Version 1)
Quarter: 2021Q3

REPORT INFORMATION
  Report Type: Spontaneous
  Country: US (occurrence: US)
  Receive Date: 20210827
  Receipt Date: 20210827
  Transmission Date: 20211014
  Serious: No
  Sender: FDA-Public Use
  Company Number: US-INDIVIOR US-INDV-129586-2021

PATIENT
  Age: 35 Year
  Sex: Female

DRUGS (1)
  1. PERSERIS [Suspect]
     Active Substance: RISPERIDONE
     Indication: PRODUCT USED FOR UNKNOWN INDICATION
     Dosage: UNK, QMO
     Route: 058

REACTIONS (2)
  - Product administered at inappropriate site [Not Recovered/Not Resolved]
  - Product preparation issue [Recovered/Resolved]
